FAERS Safety Report 10380865 (Version 2)
Quarter: 2014Q3

REPORT INFORMATION
  Report Type: Spontaneous
  Country: JP (occurrence: JP)
  Receive Date: 20140813
  Receipt Date: 20140813
  Transmission Date: 20150326
  Serious: Yes (Other)
  Sender: FDA-Public Use
  Company Number: JP-ASTELLAS-2011JP006650

PATIENT
  Age: 79 Year
  Sex: Female

DRUGS (5)
  1. CEFPIROME [Concomitant]
     Active Substance: CEFPIROME
     Indication: INFECTION
     Route: 065
     Dates: start: 20090613, end: 20090613
  2. CORTICOSTEROIDS [Concomitant]
     Active Substance: CORTICOSTEROID NOS
     Indication: THROMBOTIC THROMBOCYTOPENIC PURPURA
     Dosage: UNK UNK, UNKNOWN FREQ.
     Route: 065
     Dates: start: 200906
  3. MEROPENEM. [Concomitant]
     Active Substance: MEROPENEM
     Indication: INFECTION
     Route: 065
     Dates: start: 20090614, end: 20090619
  4. FUNGUARD [Suspect]
     Active Substance: MICAFUNGIN SODIUM
     Indication: CANDIDA INFECTION
     Route: 065
     Dates: start: 20090617, end: 20090626
  5. BIAPENEM [Concomitant]
     Active Substance: BIAPENEM
     Indication: INFECTION
     Route: 065
     Dates: start: 20090620, end: 20090626

REACTIONS (2)
  - Drug ineffective [Unknown]
  - Candida infection [Unknown]
